FAERS Safety Report 8343156-0 (Version None)
Quarter: 2012Q2

REPORT INFORMATION
  Report Type: 
  Country: None (occurrence: None)
  Receive Date: 20120508
  Receipt Date: 20120430
  Transmission Date: 20120825
  Serious: Yes (Hospitalization, Other)
  Sender: FDA-Public Use
  Company Number: BR-PFIZER INC-2012107576

PATIENT
  Age: 70 Year
  Sex: Male
  Weight: 70 kg

DRUGS (5)
  1. XALATAN [Suspect]
     Indication: GLAUCOMA
     Dosage: 3 UG, 2 DROPS 2X/DAY
     Route: 047
     Dates: start: 20020430
  2. ACETYLSALICYLIC ACID [Concomitant]
     Indication: ANTICOAGULANT THERAPY
     Dosage: 1 TABLET AFTER LUNCH
     Dates: start: 19990101
  3. CAPTOPRIL [Concomitant]
     Indication: HYPERTENSION
     Dosage: 25 MG, 2X/DAY
     Dates: start: 19990101
  4. CHONDROITIN SULFATE [Concomitant]
     Indication: GLAUCOMA
     Dosage: 2 DROPS, 2X/DAY
     Dates: start: 20020101, end: 20110101
  5. HYDROCHLOROTHIAZIDE [Concomitant]
     Indication: DIURETIC THERAPY
     Dosage: 25 MG, 1X/DAY
     Dates: start: 19990101

REACTIONS (3)
  - CEREBROVASCULAR ACCIDENT [None]
  - VISUAL ACUITY REDUCED [None]
  - HEMIPLEGIA [None]
